FAERS Safety Report 5704316-8 (Version None)
Quarter: 2008Q2

REPORT INFORMATION
  Report Type: 
  Country: None (occurrence: None)
  Receive Date: 20080409
  Receipt Date: 20080328
  Transmission Date: 20081010
  Serious: Yes (Hospitalization)
  Sender: FDA-Public Use
  Company Number: 02100-JPN-07-0316

PATIENT
  Age: 81 Year
  Sex: Female

DRUGS (7)
  1. PLETAL [Suspect]
     Indication: CEREBRAL INFARCTION
     Dosage: 100 MG, BID ORAL
     Route: 048
     Dates: start: 20051130, end: 20060623
  2. PLAVIX [Suspect]
     Indication: CEREBRAL INFARCTION
     Dosage: 75 MG, QD ORAL
     Route: 048
     Dates: start: 20051130, end: 20060623
  3. ATENOLOL [Concomitant]
  4. PLETAL [Concomitant]
  5. ASPRIN ENTERIC COATED (ASPIRIN ENTERIC COATED) [Concomitant]
  6. CANDESARTAN CILEXETIL/HYDROCHLOROTHIAZIDE (CANDESARTAN CILEXETIL/HYDRO [Concomitant]
  7. AMITRIPTYLINE HCL [Concomitant]

REACTIONS (3)
  - DYSSTASIA [None]
  - FALL [None]
  - HIP FRACTURE [None]
